FAERS Safety Report 8141965-4 (Version None)
Quarter: 2012Q1

REPORT INFORMATION
  Report Type: 
  Country: None (occurrence: None)
  Receive Date: 20120216
  Receipt Date: 20120208
  Transmission Date: 20120608
  Serious: Yes (Hospitalization)
  Sender: FDA-Public Use
  Company Number: US-BIOMARINP-002304

PATIENT
  Sex: Female
  Weight: 97.7 kg

DRUGS (3)
  1. LEVOFLOXACIN [Concomitant]
  2. KUVAN [Suspect]
     Indication: AUTONOMIC NERVOUS SYSTEM IMBALANCE
     Route: 048
     Dates: start: 20111012
  3. METRONIDAZOLE [Concomitant]

REACTIONS (1)
  - DIVERTICULITIS [None]
